FAERS Safety Report 11660061 (Version 1)
Quarter: 2015Q4

REPORT INFORMATION
  Report Type: Spontaneous
  Country: US (occurrence: None)
  Receive Date: 20151023
  Receipt Date: 20151023
  Transmission Date: 20160304
  Serious: Yes (Life-Threatening)
  Sender: FDA-Public Use
  Company Number: None

PATIENT
  Age: 23 Year
  Sex: Male
  Weight: 100 kg

DRUGS (25)
  1. FAMOTIDINE. [Concomitant]
     Active Substance: FAMOTIDINE
  2. VASOPRESSIN INFUSION [Concomitant]
  3. NXSTAGE SYSTEM ONE DIALYSIS [Concomitant]
  4. ECMO CIRCUIT [Concomitant]
  5. POLYMYXIN B. [Suspect]
     Active Substance: POLYMYXIN B
     Indication: PNEUMONIA
     Route: 042
     Dates: start: 20150816, end: 20150821
  6. AZITHROMYCIN [Concomitant]
     Active Substance: AZITHROMYCIN ANHYDROUS
  7. DOXYCYCLINE. [Concomitant]
     Active Substance: DOXYCYCLINE
  8. LANOLIN OPHTHALMIC [Concomitant]
  9. MEROPENEM. [Concomitant]
     Active Substance: MEROPENEM
  10. MIDAZOLAM [Concomitant]
     Active Substance: MIDAZOLAM\MIDAZOLAM HYDROCHLORIDE
  11. CALCIUM GLUCONATE INFUSION [Concomitant]
  12. BUSPIRONE [Concomitant]
     Active Substance: BUSPIRONE HYDROCHLORIDE
  13. HYDROMORPHINE INFUSION [Concomitant]
  14. MICAFUNGIN [Concomitant]
     Active Substance: MICAFUNGIN
  15. SENNA [Concomitant]
     Active Substance: SENNA LEAF\SENNOSIDES\SENNOSIDES A AND B
  16. EPINEPHRINE INFUSION [Concomitant]
  17. ACETAMINOPHEN. [Concomitant]
     Active Substance: ACETAMINOPHEN
  18. CISATRACURIUM. [Concomitant]
     Active Substance: CISATRACURIUM
  19. DOCUSATE [Concomitant]
     Active Substance: DOCUSATE
  20. SODIUM POTASSIUM PHOSPHATE [Concomitant]
  21. PURITAN BENNETT VENTILATOR [Concomitant]
  22. POLYMYXIN B. [Suspect]
     Active Substance: POLYMYXIN B
     Indication: SEPTIC SHOCK
     Route: 042
     Dates: start: 20150816, end: 20150821
  23. CHLORHEXIDINE [Concomitant]
     Active Substance: CHLORHEXIDINE
  24. NOREPINEPHRINE INFUSION [Concomitant]
  25. ALPRAZOLAM. [Concomitant]
     Active Substance: ALPRAZOLAM

REACTIONS (2)
  - Hypotension [None]
  - Infusion related reaction [None]

NARRATIVE: CASE EVENT DATE: 20150816
